FAERS Safety Report 7815597-9 (Version None)
Quarter: 2011Q4

REPORT INFORMATION
  Report Type: 
  Country: None (occurrence: None)
  Receive Date: 20111014
  Receipt Date: 20111005
  Transmission Date: 20120403
  Serious: Yes (Hospitalization, Other)
  Sender: FDA-Public Use
  Company Number: GB-CELGENEUS-167-C5013-11091903

PATIENT
  Sex: Male
  Weight: 80.9 kg

DRUGS (10)
  1. AMLODIPINE [Concomitant]
     Indication: CARDIAC DISORDER
     Dosage: 5 MILLIGRAM
     Route: 048
  2. COD LIVER OIL [Concomitant]
     Indication: SUPPORTIVE CARE
     Dosage: 1 GRAM
     Route: 048
  3. GLUCOSAMINE SULPHATE [Concomitant]
     Indication: SUPPORTIVE CARE
     Dosage: 1 GRAM
     Route: 048
  4. MELPHALAN HYDROCHLORIDE [Suspect]
     Indication: MULTIPLE MYELOMA
     Dosage: 8 MILLIGRAM
     Route: 065
     Dates: start: 20100929, end: 20110621
  5. ENOXAPARIN SODIUM [Concomitant]
     Dosage: 40 MILLIGRAM
     Route: 058
  6. THALIDOMIDE [Suspect]
     Dosage: 100 MILLIGRAM
     Route: 048
     Dates: end: 20110621
  7. THALIDOMIDE [Suspect]
     Indication: MULTIPLE MYELOMA
     Dosage: 100 MILLIGRAM
     Route: 048
     Dates: start: 20100929
  8. PREDNISONE [Suspect]
     Indication: MULTIPLE MYELOMA
     Dosage: 165 MILLIGRAM
     Route: 065
     Dates: start: 20100929, end: 20110621
  9. ROSE HIP [Concomitant]
     Dosage: 250 MILLIGRAM
     Route: 048
  10. OMEPRAZOLE [Concomitant]
     Indication: GASTRIC DISORDER
     Dosage: 20 MILLIGRAM
     Route: 048

REACTIONS (1)
  - SQUAMOUS CELL CARCINOMA OF SKIN [None]
